FAERS Safety Report 23884653 (Version 2)
Quarter: 2024Q2

REPORT INFORMATION
  Report Type: Spontaneous
  Country: IN (occurrence: IN)
  Receive Date: 20240522
  Receipt Date: 20240524
  Transmission Date: 20240715
  Serious: Yes (Hospitalization, Other)
  Sender: FDA-Public Use
  Company Number: IN-PFIZER INC-PV202400065646

PATIENT
  Age: 25 Year
  Sex: Male

DRUGS (4)
  1. INOTUZUMAB OZOGAMICIN [Suspect]
     Active Substance: INOTUZUMAB OZOGAMICIN
     Indication: Acute lymphocytic leukaemia
     Dosage: 1 MG, CYCLIC (CYCLE 2, WEEK 1 )
     Route: 042
     Dates: start: 20240501
  2. SODIUM CHLORIDE [Concomitant]
     Active Substance: SODIUM CHLORIDE
     Dosage: 500 ML, OVER 24 HOURS
     Route: 042
     Dates: start: 20240425
  3. SODIUM CHLORIDE [Concomitant]
     Active Substance: SODIUM CHLORIDE
     Dosage: 500 ML, OVER 2 HOURS EVERY 12 HOURS
     Route: 042
     Dates: start: 20240427, end: 20240428
  4. GRANULOCYTE COLONY-STIMULATING FACTOR NOS [Concomitant]
     Active Substance: GRANULOCYTE COLONY-STIMULATING FACTOR NOS
     Dosage: UNK

REACTIONS (7)
  - Pyrexia [Unknown]
  - Chills [Unknown]
  - Pneumonia fungal [Unknown]
  - Febrile neutropenia [Unknown]
  - Electrocardiogram QT prolonged [Unknown]
  - Anorectal discomfort [Unknown]
  - Platelet count decreased [Unknown]
